FAERS Safety Report 8568695-9 (Version None)
Quarter: 2012Q3

REPORT INFORMATION
  Report Type: 
  Country: None (occurrence: None)
  Receive Date: 20120803
  Receipt Date: 20120610
  Transmission Date: 20120928
  Serious: No
  Sender: FDA-Public Use
  Company Number: US-ABBOTT-12P-163-0946069-00

PATIENT
  Sex: Female
  Weight: 61.29 kg

DRUGS (2)
  1. SIMVASTATIN [Concomitant]
     Indication: PRODUCT USED FOR UNKNOWN INDICATION
  2. NIASPAN [Suspect]
     Indication: PRODUCT USED FOR UNKNOWN INDICATION

REACTIONS (6)
  - MOVEMENT DISORDER [None]
  - PAIN [None]
  - OEDEMA PERIPHERAL [None]
  - INFECTED BITES [None]
  - HYPOAESTHESIA [None]
  - FLUSHING [None]
